FAERS Safety Report 8323188-9 (Version None)
Quarter: 2012Q2

REPORT INFORMATION
  Report Type: 
  Country: None (occurrence: None)
  Receive Date: 20120430
  Receipt Date: 20120419
  Transmission Date: 20120825
  Serious: Yes (Hospitalization, Other)
  Sender: FDA-Public Use
  Company Number: US-ASTRAZENECA-2011SE28663

PATIENT
  Age: 59 Year
  Sex: Male
  Weight: 99.8 kg

DRUGS (6)
  1. XANAX [Concomitant]
  2. SEROQUEL [Suspect]
     Route: 048
  3. SEROQUEL [Suspect]
     Indication: DEPRESSION
     Route: 048
     Dates: start: 20090101
  4. SEROQUEL [Suspect]
     Indication: BIPOLAR DISORDER
     Route: 048
     Dates: start: 20090101
  5. CRESTOR [Suspect]
     Route: 048
  6. SEROQUEL [Suspect]
     Route: 048

REACTIONS (8)
  - BALANCE DISORDER [None]
  - BONE DISORDER [None]
  - INSOMNIA [None]
  - APPENDICITIS PERFORATED [None]
  - INTENTIONAL DRUG MISUSE [None]
  - CLOSTRIDIAL INFECTION [None]
  - DRUG WITHDRAWAL SYNDROME [None]
  - FEELING ABNORMAL [None]
